FAERS Safety Report 7037349-2 (Version None)
Quarter: 2010Q4

REPORT INFORMATION
  Report Type: 
  Country: None (occurrence: None)
  Receive Date: 20101011
  Receipt Date: 20100929
  Transmission Date: 20110411
  Serious: Yes (Other)
  Sender: FDA-Public Use
  Company Number: JP-PFIZER INC-2010123841

PATIENT
  Age: 62 Year
  Sex: Female

DRUGS (2)
  1. GABAPEN [Suspect]
     Indication: HYPOAESTHESIA
     Dosage: UNK
     Route: 048
  2. TEGRETOL [Concomitant]

REACTIONS (2)
  - LOSS OF CONSCIOUSNESS [None]
  - SOMNOLENCE [None]
